FAERS Safety Report 4604841-7 (Version None)
Quarter: 2005Q1

REPORT INFORMATION
  Report Type: 
  Country: None (occurrence: None)
  Receive Date: 20050311
  Receipt Date: 20050301
  Transmission Date: 20050727
  Serious: Yes (Other)
  Sender: FDA-Public Use
  Company Number: US-JNJFOC-20050100843

PATIENT
  Sex: Male
  Weight: 86.18 kg

DRUGS (3)
  1. REMICADE [Suspect]
     Indication: CROHN'S DISEASE
     Route: 042
  2. IMURAN [Concomitant]
  3. PREDNISONE [Concomitant]

REACTIONS (1)
  - LUPUS-LIKE SYNDROME [None]
